FAERS Safety Report 7438633-0 (Version None)
Quarter: 2011Q2

REPORT INFORMATION
  Report Type: 
  Country: None (occurrence: None)
  Receive Date: 20110426
  Receipt Date: 20110413
  Transmission Date: 20111010
  Serious: Yes (Death)
  Sender: FDA-Public Use
  Company Number: US-CELGENEUS-163-21880-11041535

PATIENT
  Sex: Male

DRUGS (11)
  1. REVLIMID [Suspect]
     Indication: MYELODYSPLASTIC SYNDROME
     Dosage: 10 MILLIGRAM
     Route: 048
     Dates: start: 20100922, end: 20110406
  2. ROXICODONE [Concomitant]
     Dosage: 15 MILLIGRAM
     Route: 048
  3. AMBIEN [Concomitant]
     Dosage: 5 MILLIGRAM
     Route: 048
  4. FLOMAX [Concomitant]
     Dosage: .4 MILLIGRAM
     Route: 048
  5. BACID [Concomitant]
     Route: 048
  6. PREDNISONE [Concomitant]
     Dosage: 1 MILLIGRAM
     Route: 048
  7. VANCOMYCIN [Concomitant]
     Dosage: 1 GRAM
     Route: 065
  8. ASPIRIN [Concomitant]
     Dosage: 81 MILLIGRAM
     Route: 048
  9. PRILOSEC [Concomitant]
     Dosage: 10 MILLIGRAM
     Route: 048
  10. EFFEXOR [Concomitant]
     Dosage: 25 MILLIGRAM
     Route: 048
  11. ATIVAN [Concomitant]
     Dosage: .5 MILLIGRAM
     Route: 048

REACTIONS (1)
  - DEATH [None]
